FAERS Safety Report 5669921-6 (Version None)
Quarter: 2008Q1

REPORT INFORMATION
  Report Type: 
  Country: None (occurrence: None)
  Receive Date: 20080317
  Receipt Date: 20080305
  Transmission Date: 20080703
  Serious: Yes (Other)
  Sender: FDA-Public Use
  Company Number: BR-PFIZER INC-2008021344

PATIENT
  Sex: Male
  Weight: 12 kg

DRUGS (1)
  1. FELDENE [Suspect]
     Indication: PHARYNGOLARYNGEAL PAIN
     Dosage: FREQ:EVERY DAY
     Route: 063
     Dates: start: 20080228, end: 20080301

REACTIONS (3)
  - DEHYDRATION [None]
  - DIARRHOEA [None]
  - DRUG EXPOSURE VIA BREAST MILK [None]
